FAERS Safety Report 5247731-1 (Version None)
Quarter: 2007Q1

REPORT INFORMATION
  Report Type: 
  Country: None (occurrence: None)
  Receive Date: 20070220
  Receipt Date: 20070207
  Transmission Date: 20070707
  Serious: Yes (Other)
  Sender: FDA-Public Use
  Company Number: 2007SP002612

PATIENT
  Age: 2 Year
  Weight: 7.7 kg

DRUGS (1)
  1. LORATADINE [Suspect]
     Indication: DRUG USE FOR UNKNOWN INDICATION
     Dosage: 830 MG;ONCE;PO
     Route: 048

REACTIONS (2)
  - HEART RATE INCREASED [None]
  - SOMNOLENCE [None]
